FAERS Safety Report 7105673-0 (Version None)
Quarter: 2010Q4

REPORT INFORMATION
  Report Type: 
  Country: None (occurrence: None)
  Receive Date: 20101110
  Receipt Date: 20101102
  Transmission Date: 20110411
  Serious: Yes (Hospitalization)
  Sender: FDA-Public Use
  Company Number: 2010100041

PATIENT
  Age: 53 Year
  Sex: Female
  Weight: 64.8644 kg

DRUGS (13)
  1. ONSOLIS [Suspect]
     Indication: CANCER PAIN
     Dosage: TITRATE UP TO 4-200 MCG FILMS (UP TO 4 TIMES DAILY), BU, 800 MCG, UP TO 4 TIMES DAILY, BU
     Route: 002
     Dates: start: 20100616, end: 20100901
  2. ONSOLIS [Suspect]
     Indication: CANCER PAIN
     Dosage: TITRATE UP TO 4-200 MCG FILMS (UP TO 4 TIMES DAILY), BU, 800 MCG, UP TO 4 TIMES DAILY, BU
     Route: 002
     Dates: start: 20100902
  3. ONSOLIS [Suspect]
  4. CHEMOTHERAPY [Suspect]
     Indication: BLADDER CANCER
     Dosage: 1 IN 3 WK, IV
     Route: 042
     Dates: start: 20100101
  5. METHADONE HCL [Concomitant]
  6. OXYCODONE HCL [Concomitant]
  7. LORCET-HD [Concomitant]
  8. VALIUM [Concomitant]
  9. PROZAC [Concomitant]
  10. OMEPRAZOLE [Concomitant]
  11. VESICARE [Concomitant]
  12. LACTULOSE [Concomitant]
  13. AMBIEN CR [Concomitant]

REACTIONS (8)
  - BLOOD ELECTROLYTES DECREASED [None]
  - CANCER PAIN [None]
  - CONDITION AGGRAVATED [None]
  - INCORRECT DOSE ADMINISTERED [None]
  - MEMORY IMPAIRMENT [None]
  - NAUSEA [None]
  - PRURITUS GENERALISED [None]
  - VOMITING [None]
